FAERS Safety Report 15335711 (Version 2)
Quarter: 2019Q1

REPORT INFORMATION
  Report Type: Report from Study
  Country: JP (occurrence: JP)
  Receive Date: 20180830
  Receipt Date: 20190329
  Transmission Date: 20190417
  Serious: Yes (Death, Other)
  Sender: FDA-Public Use
  Company Number: PHJP2017JP035927

PATIENT
  Age: 33 Year
  Sex: Male

DRUGS (2)
  1. ZYKADIA [Suspect]
     Active Substance: CERITINIB
     Indication: NON-SMALL CELL LUNG CANCER STAGE IV
     Dosage: 750 MG, QD
     Route: 048
     Dates: start: 20170623, end: 20170724
  2. ZYKADIA [Suspect]
     Active Substance: CERITINIB
     Dosage: 150 MG, QOD
     Route: 048
     Dates: start: 20170824, end: 20170828

REACTIONS (4)
  - Aspartate aminotransferase increased [Fatal]
  - Metastases to liver [Recovering/Resolving]
  - Alanine aminotransferase increased [Fatal]
  - Drug ineffective [Unknown]

NARRATIVE: CASE EVENT DATE: 20170724
